FAERS Safety Report 7884607-5 (Version None)
Quarter: 2011Q4

REPORT INFORMATION
  Report Type: 
  Country: None (occurrence: None)
  Receive Date: 20111102
  Receipt Date: 20111026
  Transmission Date: 20120403
  Serious: Yes (Other)
  Sender: FDA-Public Use
  Company Number: IE-AMGEN-IRLSP2011047720

PATIENT
  Sex: Female

DRUGS (10)
  1. ONE-ALPHA [Concomitant]
  2. ASPIRIN [Concomitant]
  3. ARANESP [Suspect]
     Indication: PRODUCT USED FOR UNKNOWN INDICATION
     Dosage: 40 MUG, QWK
     Route: 058
     Dates: start: 20110714
  4. CLARITHROMYCIN [Concomitant]
  5. PREDNISOLONE [Concomitant]
     Indication: RENAL FAILURE CHRONIC
  6. MEMANTINE HYDROCHLORIDE [Concomitant]
  7. LANSOPRAZOLE [Concomitant]
  8. ZIRPINE [Concomitant]
  9. CALOGEN                            /00371903/ [Concomitant]
  10. FUCITHALMIC [Concomitant]

REACTIONS (1)
  - KIDNEY INFECTION [None]
